FAERS Safety Report 6599811-6 (Version None)
Quarter: 2010Q1

REPORT INFORMATION
  Report Type: 
  Country: None (occurrence: None)
  Receive Date: 20100216
  Receipt Date: 20100202
  Transmission Date: 20100710
  Serious: Yes (Other)
  Sender: FDA-Public Use
  Company Number: THQ2010A00244

PATIENT
  Age: 52 Year
  Sex: Female

DRUGS (2)
  1. ACTOS [Suspect]
     Indication: TYPE 2 DIABETES MELLITUS
     Dosage: 45 MG (45 MG,1 IN 1 D) PER ORAL
     Route: 048
     Dates: start: 20091115, end: 20100117
  2. ANTIHYPERTENSIVES [Concomitant]

REACTIONS (2)
  - DIABETES MELLITUS INADEQUATE CONTROL [None]
  - SCLEROEDEMA [None]
